FAERS Safety Report 9659483 (Version 3)
Quarter: 2013Q4

REPORT INFORMATION
  Report Type: Report from Study
  Country: US (occurrence: US)
  Receive Date: 20131031
  Receipt Date: 20131106
  Transmission Date: 20140711
  Serious: Yes (Death)
  Sender: FDA-Public Use
  Company Number: PHEH2013US019389

PATIENT
  Age: 83 Year
  Sex: Male

DRUGS (1)
  1. GLEEVEC [Suspect]
     Indication: GASTRIC CANCER
     Dosage: UNK UKN, DAILY
     Route: 048
     Dates: start: 20130403

REACTIONS (2)
  - Drug ineffective [Unknown]
  - Death [Fatal]
